FAERS Safety Report 13938837 (Version 1)
Quarter: 2017Q3

REPORT INFORMATION
  Report Type: Report from Study
  Country: US (occurrence: US)
  Receive Date: 20170906
  Receipt Date: 20170906
  Transmission Date: 20171127
  Serious: Yes (Hospitalization)
  Sender: FDA-Public Use
  Company Number: US-ROCHE-1965154

PATIENT
  Age: 64 Year
  Sex: Female
  Weight: 93.98 kg

DRUGS (36)
  1. ALBUTEROL. [Concomitant]
     Active Substance: ALBUTEROL
     Dosage: ONGOING YES
     Route: 055
  2. MIRALAX [Concomitant]
     Active Substance: POLYETHYLENE GLYCOL 3350
  3. ZETIA [Concomitant]
     Active Substance: EZETIMIBE
     Indication: BLOOD CHOLESTEROL
     Route: 048
     Dates: start: 2002
  4. OMEPRAZOLE. [Concomitant]
     Active Substance: OMEPRAZOLE
     Indication: GASTROOESOPHAGEAL REFLUX DISEASE
     Route: 048
     Dates: start: 2002
  5. ADVAIR HFA [Concomitant]
     Active Substance: FLUTICASONE PROPIONATE\SALMETEROL XINAFOATE
     Route: 065
  6. VITAMIN E [Concomitant]
     Active Substance: .ALPHA.-TOCOPHEROL
     Route: 048
  7. BIOTIN [Concomitant]
     Active Substance: BIOTIN
     Route: 048
  8. VITAMIN D3 [Concomitant]
     Active Substance: CHOLECALCIFEROL
     Dosage: ONGOING:YES
     Route: 065
  9. GABAPENTIN. [Concomitant]
     Active Substance: GABAPENTIN
     Indication: FIBROMYALGIA
     Route: 048
  10. ENDOCET [Concomitant]
     Active Substance: ACETAMINOPHEN\OXYCODONE HYDROCHLORIDE
     Indication: FIBROMYALGIA
     Dosage: 10 MG-325 MG EVERY 5 HOURS AS NEEDED
     Route: 048
  11. CRESTOR [Concomitant]
     Active Substance: ROSUVASTATIN CALCIUM
     Dosage: ONGOING:YES
     Route: 048
  12. TIZANIDINE. [Concomitant]
     Active Substance: TIZANIDINE
     Indication: FIBROMYALGIA
  13. METOPROLOL. [Concomitant]
     Active Substance: METOPROLOL
     Indication: BLOOD PRESSURE MEASUREMENT
     Dosage: ONGOING:YES
     Route: 048
  14. METOPROLOL. [Concomitant]
     Active Substance: METOPROLOL
     Dosage: TOTAL OF 100MG DOSAGE DAILY; ONGOING YES
     Route: 048
     Dates: start: 201707
  15. ASPIRIN. [Concomitant]
     Active Substance: ASPIRIN
     Route: 048
     Dates: start: 2002
  16. VITAMIN D3 [Concomitant]
     Active Substance: CHOLECALCIFEROL
     Route: 048
  17. CRESTOR [Concomitant]
     Active Substance: ROSUVASTATIN CALCIUM
     Indication: BLOOD CHOLESTEROL
     Route: 048
     Dates: start: 2002
  18. ESBRIET [Suspect]
     Active Substance: PIRFENIDONE
     Dosage: 1 CAPSULES BY MOUTH 3 TIMES PER DAY FOR 1 WEEK ;ONGOING: YES
     Route: 048
     Dates: start: 20170615
  19. ESBRIET [Suspect]
     Active Substance: PIRFENIDONE
     Dosage: 2 CAPSULES 3 TIMES PER DAY FOR 1 WEEK;ONGOING: YES
     Route: 048
  20. CYMBALTA [Concomitant]
     Active Substance: DULOXETINE HYDROCHLORIDE
     Indication: ANXIETY
     Route: 048
     Dates: start: 2002
  21. FUROSEMIDE. [Concomitant]
     Active Substance: FUROSEMIDE
     Route: 048
  22. GABAPENTIN. [Concomitant]
     Active Substance: GABAPENTIN
     Route: 048
  23. POTASSIUM CHLORIDE. [Concomitant]
     Active Substance: POTASSIUM CHLORIDE
     Route: 048
     Dates: start: 2016
  24. ALBUTEROL INHALATION SOLUTION [Concomitant]
     Active Substance: ALBUTEROL
     Indication: IDIOPATHIC PULMONARY FIBROSIS
     Dosage: THREE TIMES A DAY AS NEEDED IF WHEEZING
     Route: 055
     Dates: start: 2007
  25. CYMBALTA [Concomitant]
     Active Substance: DULOXETINE HYDROCHLORIDE
     Indication: DEPRESSION
  26. PANTOPRAZOLE [Concomitant]
     Active Substance: PANTOPRAZOLE
     Indication: GASTROOESOPHAGEAL REFLUX DISEASE
     Route: 065
     Dates: start: 2002
  27. ANORO ELLIPTA [Concomitant]
     Active Substance: UMECLIDINIUM BROMIDE\VILANTEROL TRIFENATATE
     Dosage: I PUFF DAILY; ONGOING YES
     Route: 055
  28. ESBRIET [Suspect]
     Active Substance: PIRFENIDONE
     Indication: IDIOPATHIC PULMONARY FIBROSIS
     Dosage: 3 CAPSULES 3 TIMES PER DAY ;ONGOING: YES
     Route: 048
     Dates: start: 20170620, end: 20170823
  29. ALBUTEROL. [Concomitant]
     Active Substance: ALBUTEROL
     Indication: IDIOPATHIC PULMONARY FIBROSIS
     Dosage: TWO PUFFS TWICE A DAY AS NEEDED;
     Route: 055
  30. ENDOCET [Concomitant]
     Active Substance: ACETAMINOPHEN\OXYCODONE HYDROCHLORIDE
     Indication: PAIN
  31. ANORO ELLIPTA [Concomitant]
     Active Substance: UMECLIDINIUM BROMIDE\VILANTEROL TRIFENATATE
     Route: 048
     Dates: start: 2016
  32. METOPROLOL. [Concomitant]
     Active Substance: METOPROLOL
     Dosage: ONGOING:NO
     Route: 048
     Dates: start: 2002
  33. FISH OIL [Concomitant]
     Active Substance: FISH OIL
     Route: 065
  34. TIZANIDINE. [Concomitant]
     Active Substance: TIZANIDINE
     Indication: MUSCLE SPASMS
     Route: 048
     Dates: start: 2007
  35. DULOXETINE. [Concomitant]
     Active Substance: DULOXETINE
     Dosage: AT NIGHT; ONGOING YES
     Route: 048
  36. VENTOLIN HFA [Concomitant]
     Active Substance: ALBUTEROL SULFATE
     Dosage: 2 PUFFS AS NEEDED; ONGOING: YES
     Route: 055

REACTIONS (22)
  - Decreased appetite [Not Recovered/Not Resolved]
  - Dizziness [Recovered/Resolved]
  - Hypertension [Not Recovered/Not Resolved]
  - Dyspnoea [Not Recovered/Not Resolved]
  - Headache [Not Recovered/Not Resolved]
  - Thermal burn [Recovered/Resolved]
  - Nausea [Recovered/Resolved]
  - Fibromyalgia [Not Recovered/Not Resolved]
  - Nausea [Not Recovered/Not Resolved]
  - Temperature intolerance [Not Recovered/Not Resolved]
  - Diarrhoea [Not Recovered/Not Resolved]
  - Dyspepsia [Not Recovered/Not Resolved]
  - Sinusitis [Recovered/Resolved with Sequelae]
  - Nervousness [Not Recovered/Not Resolved]
  - Insomnia [Not Recovered/Not Resolved]
  - Blood pressure fluctuation [Not Recovered/Not Resolved]
  - Hypotension [Recovered/Resolved]
  - Fatigue [Not Recovered/Not Resolved]
  - Constipation [Recovered/Resolved]
  - Nervousness [Recovered/Resolved]
  - Abdominal pain upper [Recovered/Resolved]
  - Gastrooesophageal reflux disease [Not Recovered/Not Resolved]

NARRATIVE: CASE EVENT DATE: 201707
